FAERS Safety Report 6310780-6 (Version None)
Quarter: 2009Q3

REPORT INFORMATION
  Report Type: 
  Country: None (occurrence: None)
  Receive Date: 20090812
  Receipt Date: 20090804
  Transmission Date: 20100115
  Serious: Yes (Other)
  Sender: FDA-Public Use
  Company Number: GXKR2009US08863

PATIENT
  Age: 60 Year
  Sex: Female

DRUGS (3)
  1. PREDNISONE (NGX) (PREDNISONE) [Suspect]
     Indication: SARCOIDOSIS
     Dosage: HIGH DOSE
  2. MYCOPHENOLATE MOFETIL [Suspect]
     Indication: RENAL TRANSPLANT
  3. CYCLOSPORINE [Suspect]
     Indication: RENAL TRANSPLANT

REACTIONS (6)
  - CALCINOSIS [None]
  - CALCIPHYLAXIS [None]
  - ERYTHEMA [None]
  - FIBROSIS [None]
  - IMPAIRED HEALING [None]
  - SKIN ULCER [None]
